FAERS Safety Report 24370360 (Version 2)
Quarter: 2024Q4

REPORT INFORMATION
  Report Type: Other
  Country: GB (occurrence: GB)
  Receive Date: 20240927
  Receipt Date: 20241011
  Transmission Date: 20250114
  Serious: Yes (Hospitalization)
  Sender: BIOCON
  Company Number: GB-BIOCON BIOLOGICS LIMITED-BBL2024007029

PATIENT

DRUGS (1)
  1. YUFLYMA [Suspect]
     Active Substance: ADALIMUMAB-AATY
     Indication: Psoriatic arthropathy
     Dosage: 40 MILLIGRAM EVERY 2 WEEKS
     Route: 058

REACTIONS (2)
  - Infection [Recovering/Resolving]
  - Intentional dose omission [Recovering/Resolving]
